FAERS Safety Report 4480299-6 (Version None)
Quarter: 2004Q3

REPORT INFORMATION
  Report Type: 
  Country: None (occurrence: None)
  Receive Date: 20040923
  Receipt Date: 20040716
  Transmission Date: 20050211
  Serious: No
  Sender: FDA-Public Use
  Company Number: USA031255551

PATIENT
  Age: 86 Year
  Sex: Female
  Weight: 58 kg

DRUGS (3)
  1. FORTEO [Suspect]
     Indication: OSTEOPOROSIS
     Dosage: 20 UG/1 IN THE MORNING
     Dates: start: 20031201
  2. LIPITOR [Concomitant]
  3. MULTIVITAMIN [Concomitant]

REACTIONS (9)
  - CARPAL TUNNEL SYNDROME [None]
  - CONSTIPATION [None]
  - DIZZINESS [None]
  - FALL [None]
  - INJECTION SITE ERYTHEMA [None]
  - INJECTION SITE HAEMORRHAGE [None]
  - INJECTION SITE VESICLES [None]
  - MOTOR DYSFUNCTION [None]
  - SKIN TIGHTNESS [None]
